FAERS Safety Report 5191831-1 (Version None)
Quarter: 2006Q4

REPORT INFORMATION
  Report Type: 
  Country: None (occurrence: None)
  Receive Date: 20061227
  Receipt Date: 20061218
  Transmission Date: 20070319
  Serious: Yes (Life-Threatening)
  Sender: FDA-Public Use
  Company Number: US-JNJFOC-20061205807

PATIENT
  Age: 76 Year
  Sex: Female

DRUGS (2)
  1. FENTANYL TRANSDERMAL SYSTEM [Suspect]
     Indication: CANCER PAIN
     Route: 062
  2. MORPHINE SULFATE [Concomitant]
     Indication: PAIN
     Route: 065

REACTIONS (5)
  - CONFUSIONAL STATE [None]
  - FALL [None]
  - OVERDOSE [None]
  - PAIN [None]
  - THERAPY REGIMEN CHANGED [None]
